FAERS Safety Report 21796066 (Version 1)
Quarter: 2022Q4

REPORT INFORMATION
  Report Type: Spontaneous
  Country: US (occurrence: US)
  Receive Date: 20221229
  Receipt Date: 20221229
  Transmission Date: 20230112
  Serious: No
  Sender: FDA-Public Use
  Company Number: US-SA-SAC20221219001038

PATIENT

DRUGS (1)
  1. LARONIDASE [Suspect]
     Active Substance: LARONIDASE
     Indication: Mucopolysaccharidosis I
     Dosage: 60.9, QOW
     Route: 042
     Dates: start: 20041117

REACTIONS (1)
  - Medical device site discomfort [Recovering/Resolving]

NARRATIVE: CASE EVENT DATE: 20221214
